FAERS Safety Report 5151626-1 (Version None)
Quarter: 2006Q4

REPORT INFORMATION
  Report Type: 
  Country: None (occurrence: None)
  Receive Date: 20061115
  Receipt Date: 20060613
  Transmission Date: 20070319
  Serious: No
  Sender: FDA-Public Use
  Company Number: US-BRISTOL-MYERS SQUIBB COMPANY-13410972

PATIENT
  Age: 54 Year
  Sex: Male
  Weight: 91 kg

DRUGS (9)
  1. SUSTIVA [Suspect]
     Indication: HIV INFECTION
     Route: 048
     Dates: start: 20041201
  2. COUMADIN [Suspect]
     Dosage: 10 MG/D X 2 DAY THEN 2 MG/DAY ALTERNATING EVERY OTHER DAY WITH 3 MG/DAY INCREASED 5 MG/D THEN 6MG/D
     Dates: start: 20060501
  3. DOXAZOSIN MESYLATE [Concomitant]
     Dates: start: 20040101
  4. DAPSONE [Concomitant]
     Dates: start: 20041201
  5. TRUVADA [Concomitant]
     Indication: HIV INFECTION
     Dates: start: 20041201
  6. ZOLOFT [Concomitant]
  7. FIBERCON [Concomitant]
  8. CHOLESTYRAMINE [Concomitant]
  9. NEXIUM [Concomitant]

REACTIONS (11)
  - ARTHRALGIA [None]
  - ASTHENIA [None]
  - DIZZINESS [None]
  - DYSPNOEA [None]
  - HYPOAESTHESIA [None]
  - INTERNATIONAL NORMALISED RATIO DECREASED [None]
  - MEDICATION ERROR [None]
  - OEDEMA PERIPHERAL [None]
  - THROMBOSIS [None]
  - TINNITUS [None]
  - WEIGHT INCREASED [None]
